FAERS Safety Report 10217281 (Version 2)
Quarter: 2014Q3

REPORT INFORMATION
  Report Type: Spontaneous
  Country: US (occurrence: US)
  Receive Date: 20140604
  Receipt Date: 20140722
  Transmission Date: 20150326
  Serious: No
  Sender: FDA-Public Use
  Company Number: US-PFIZER INC-2014150805

PATIENT
  Sex: Female

DRUGS (2)
  1. LEVOTHYROXINE SODIUM. [Suspect]
     Active Substance: LEVOTHYROXINE SODIUM
     Indication: AUTOIMMUNE THYROIDITIS
     Dosage: UNK
  2. ARMOUR THYROID [Suspect]
     Active Substance: THYROID, PORCINE\THYROID, UNSPECIFIED
     Dosage: UNK

REACTIONS (8)
  - Alopecia [Unknown]
  - Bone pain [Unknown]
  - Sluggishness [Unknown]
  - Thyroid function test abnormal [Unknown]
  - Onychoclasis [Unknown]
  - Fatigue [Unknown]
  - Heart rate increased [Unknown]
  - Feeling abnormal [Unknown]
